FAERS Safety Report 8337388-5 (Version None)
Quarter: 2012Q2

REPORT INFORMATION
  Report Type: 
  Country: None (occurrence: None)
  Receive Date: 20120502
  Receipt Date: 20120214
  Transmission Date: 20120825
  Serious: Yes (Hospitalization)
  Sender: FDA-Public Use
  Company Number: CIO12004610

PATIENT
  Sex: Male

DRUGS (1)
  1. PSYLLIUM HYDROPHILIC MUCILLOID(PSYLLIUM HYDROPHILIC MUCILLOID UNK UNK) [Suspect]
     Dosage: RESPIRATORY
     Route: 055
     Dates: start: 20120210, end: 20120210

REACTIONS (24)
  - ANAPHYLACTIC REACTION [None]
  - PHARYNGEAL OEDEMA [None]
  - NASAL CONGESTION [None]
  - ERYTHEMA [None]
  - RASH [None]
  - EYE SWELLING [None]
  - PRESYNCOPE [None]
  - COUGH [None]
  - THROAT TIGHTNESS [None]
  - ADVERSE DRUG REACTION [None]
  - DIZZINESS [None]
  - OCCUPATIONAL EXPOSURE TO DRUG [None]
  - PARAESTHESIA [None]
  - LOCAL SWELLING [None]
  - DYSPNOEA [None]
  - FATIGUE [None]
  - FLUSHING [None]
  - HEADACHE [None]
  - FEELING ABNORMAL [None]
  - SWELLING FACE [None]
  - OCULAR HYPERAEMIA [None]
  - NASAL DISCOMFORT [None]
  - BRONCHOSPASM [None]
  - FEELING HOT [None]
